FAERS Safety Report 20964110 (Version 1)
Quarter: 2022Q2

REPORT INFORMATION
  Report Type: Spontaneous
  Country: US (occurrence: US)
  Receive Date: 20220615
  Receipt Date: 20220615
  Transmission Date: 20220721
  Serious: Yes (Hospitalization, Other)
  Sender: FDA-Public Use
  Company Number: US-SA-SAC20220613000226

PATIENT
  Age: 63 Year
  Sex: Male

DRUGS (1)
  1. ZANTAC [Suspect]
     Active Substance: RANITIDINE HYDROCHLORIDE
     Indication: Gastrooesophageal reflux disease
     Dosage: 75 MG, QD
     Route: 065
     Dates: start: 199904, end: 202001

REACTIONS (4)
  - Prostate cancer [Unknown]
  - Postoperative abscess [Unknown]
  - Sepsis [Unknown]
  - Near death experience [Unknown]

NARRATIVE: CASE EVENT DATE: 20090901
